FAERS Safety Report 12828969 (Version 1)
Quarter: 2016Q4

REPORT INFORMATION
  Report Type: Spontaneous
  Country: US (occurrence: US)
  Receive Date: 20161007
  Receipt Date: 20161007
  Transmission Date: 20170207
  Serious: No
  Sender: FDA-Public Use
  Company Number: US-SA-2016SA034271

PATIENT
  Sex: Female

DRUGS (1)
  1. AUBAGIO [Suspect]
     Active Substance: TERIFLUNOMIDE
     Route: 065
     Dates: start: 2016

REACTIONS (4)
  - Fatigue [Unknown]
  - Muscle spasms [Not Recovered/Not Resolved]
  - Irritability [Unknown]
  - Pain in extremity [Not Recovered/Not Resolved]
